FAERS Safety Report 4437254-1 (Version None)
Quarter: 2004Q3

REPORT INFORMATION
  Report Type: 
  Country: None (occurrence: None)
  Receive Date: 20040728
  Receipt Date: 20040413
  Transmission Date: 20050211
  Serious: No
  Sender: FDA-Public Use
  Company Number: WAES 0404USA01357

PATIENT
  Age: 63 Year
  Sex: Female
  Weight: 52.6173 kg

DRUGS (4)
  1. EMEND [Suspect]
     Indication: PROPHYLAXIS
     Dosage: 125 MG/1X/PO; SEE IMAGE
     Route: 048
     Dates: start: 20040318, end: 20040318
  2. EMEND [Suspect]
     Indication: PROPHYLAXIS
     Dosage: 125 MG/1X/PO; SEE IMAGE
     Route: 048
     Dates: start: 20040319, end: 20040320
  3. ADRIAMYCIN PFS [Concomitant]
     Indication: CHEMOTHERAPY
  4. CYTOXAN [Concomitant]

REACTIONS (2)
  - OEDEMA PERIPHERAL [None]
  - RASH [None]
